FAERS Safety Report 4518525-7 (Version None)
Quarter: 2004Q4

REPORT INFORMATION
  Report Type: 
  Country: None (occurrence: None)
  Receive Date: 20041203
  Receipt Date: 20041125
  Transmission Date: 20050328
  Serious: Yes (Other)
  Sender: FDA-Public Use
  Company Number: IE-MERCK-0411GBR00251

PATIENT
  Age: 65 Year
  Sex: Female

DRUGS (6)
  1. VIOXX [Suspect]
     Indication: MUSCULOSKELETAL STIFFNESS
     Route: 048
     Dates: start: 20040419, end: 20040101
  2. DIAZEPAM [Concomitant]
     Route: 065
  3. PSYLLIUM HUSK [Concomitant]
     Route: 065
  4. AMILORIDE HYDROCHLORIDE AND HYDROCHLOROTHIAZIDE [Concomitant]
     Route: 065
  5. CELIPROLOL HYDROCHLORIDE [Concomitant]
     Route: 065
  6. ACETAMINOPHEN AND CAFFEINE AND CODEINE PHOSPHATE [Concomitant]
     Route: 065

REACTIONS (1)
  - DYSAESTHESIA [None]
